FAERS Safety Report 15852207 (Version 4)
Quarter: 2019Q2

REPORT INFORMATION
  Report Type: Report from Study
  Country: US (occurrence: US)
  Receive Date: 20190122
  Receipt Date: 20190419
  Transmission Date: 20190711
  Serious: Yes (Hospitalization)
  Sender: FDA-Public Use
  Company Number: PHEH2019US002732

PATIENT
  Age: 38 Year
  Sex: Male
  Weight: 92.52 kg

DRUGS (1)
  1. GILENYA [Suspect]
     Active Substance: FINGOLIMOD HYDROCHLORIDE
     Indication: RELAPSING MULTIPLE SCLEROSIS
     Dosage: 0.5 MG, QD
     Route: 048
     Dates: start: 20180524

REACTIONS (5)
  - Dehydration [Unknown]
  - Pain [Not Recovered/Not Resolved]
  - Seizure [Recovered/Resolved]
  - Road traffic accident [Unknown]
  - Confusional state [Unknown]

NARRATIVE: CASE EVENT DATE: 20190106
